FAERS Safety Report 21680427 (Version 1)
Quarter: 2022Q4

REPORT INFORMATION
  Report Type: Spontaneous
  Country: CA (occurrence: CA)
  Receive Date: 20221205
  Receipt Date: 20221205
  Transmission Date: 20230113
  Serious: Yes (Other)
  Sender: FDA-Public Use
  Company Number: CA-CELLTRION INC.-2022CA020378

PATIENT

DRUGS (2)
  1. INFLECTRA [Suspect]
     Active Substance: INFLIXIMAB-DYYB
     Indication: Colitis ulcerative
     Dosage: 10 MG/KG, INDUCTION AT WEEK 0,2,6 THEN EVERY 8 WEEKS (IN HOSPITAL)
     Route: 042
     Dates: start: 20221120
  2. PREDNISONE [Concomitant]
     Active Substance: PREDNISONE
     Dosage: 40MG TAPER

REACTIONS (2)
  - Diarrhoea haemorrhagic [Unknown]
  - Condition aggravated [Unknown]

NARRATIVE: CASE EVENT DATE: 20221101
